FAERS Safety Report 23352962 (Version 1)
Quarter: 2023Q4

REPORT INFORMATION
  Report Type: Spontaneous
  Country: FR (occurrence: FR)
  Receive Date: 20231230
  Receipt Date: 20231230
  Transmission Date: 20240109
  Serious: Yes (Hospitalization, Other)
  Sender: FDA-Public Use
  Company Number: FR-AFSSAPS-TS2023001640

PATIENT
  Age: 64 Year
  Sex: Female
  Weight: 72 kg

DRUGS (6)
  1. CIMETIDINE [Suspect]
     Active Substance: CIMETIDINE
     Indication: Prophylaxis
     Dosage: 400 MILLIGRAM, 1 TOTAL
     Route: 048
     Dates: start: 20230303, end: 20230303
  2. ONDANSETRON [Suspect]
     Active Substance: ONDANSETRON
     Indication: Nausea
     Dosage: 4 MILLIGRAM, ONCE A DAY
     Route: 042
     Dates: start: 20230303, end: 20230305
  3. AMOXICILLIN\CLAVULANIC ACID [Suspect]
     Active Substance: AMOXICILLIN\CLAVULANIC ACID
     Indication: Antibiotic prophylaxis
     Dosage: 3 GRAM, TOTAL
     Route: 042
     Dates: start: 20230303, end: 20230303
  4. LANSOPRAZOLE [Suspect]
     Active Substance: LANSOPRAZOLE
     Indication: Product used for unknown indication
     Dosage: 15 MILLIGRAM, ONCE A DAY
     Route: 048
     Dates: start: 20230303, end: 20230313
  5. KETOPROFEN [Suspect]
     Active Substance: KETOPROFEN
     Indication: Pain prophylaxis
     Dosage: 100 MILLIGRAM, 1 TOTAL
     Route: 042
     Dates: start: 20230303, end: 20230303
  6. DOLIPRANE [Suspect]
     Active Substance: ACETAMINOPHEN
     Indication: Pain
     Dosage: 1 DOSAGE FORM, AS NECESSARY
     Route: 048
     Dates: start: 20230303, end: 20230313

REACTIONS (1)
  - Renal tubular necrosis [Recovered/Resolved]

NARRATIVE: CASE EVENT DATE: 20230304
